FAERS Safety Report 23324071 (Version 1)
Quarter: 2023Q4

REPORT INFORMATION
  Report Type: Spontaneous
  Country: GB (occurrence: GB)
  Receive Date: 20231221
  Receipt Date: 20231221
  Transmission Date: 20240110
  Serious: Yes (Life-Threatening, Hospitalization, Other)
  Sender: FDA-Public Use
  Company Number: GB-CELLTRION INC.-2023GB024226

PATIENT

DRUGS (1)
  1. ADALIMUMAB [Suspect]
     Active Substance: ADALIMUMAB\ISOPROPYL ALCOHOL
     Indication: Product used for unknown indication
     Dosage: ADDITIONAL INFORMATION ON DRUG (FREE TEXT): ADDITIONAL INFO: ROUTE:

REACTIONS (1)
  - Malignant hypertension [Recovering/Resolving]

NARRATIVE: CASE EVENT DATE: 20231126
